FAERS Safety Report 13399579 (Version 1)
Quarter: 2017Q2

REPORT INFORMATION
  Report Type: Spontaneous
  Country: US (occurrence: US)
  Receive Date: 20170403
  Receipt Date: 20170403
  Transmission Date: 20170830
  Serious: Yes (Life-Threatening, Hospitalization)
  Sender: FDA-Public Use
  Company Number: None

PATIENT
  Age: 79 Year
  Sex: Female
  Weight: 54 kg

DRUGS (9)
  1. POTASSIUM CHLORIDE. [Concomitant]
     Active Substance: POTASSIUM CHLORIDE
  2. DILTIAZEM HCL ER [Concomitant]
  3. DIPHEN/ATROP [Concomitant]
     Active Substance: ATROPINE SULFATE\DIPHENOXYLATE
  4. AREDS 2 [Concomitant]
     Active Substance: MINERALS\VITAMINS
  5. MAGNESIUM [Concomitant]
     Active Substance: MAGNESIUM
  6. ELIQUIS [Suspect]
     Active Substance: APIXABAN
     Indication: ATRIAL FIBRILLATION
     Dosage: ?          QUANTITY:1 TABLET(S);?
     Route: 048
     Dates: start: 20160403, end: 20170124
  7. CLONAZEPAM. [Concomitant]
     Active Substance: CLONAZEPAM
  8. VITAMIN D3 [Concomitant]
     Active Substance: CHOLECALCIFEROL
  9. TRIAMTERENE/HYDROCHLORO THIAZIDE [Concomitant]

REACTIONS (2)
  - Urinary bladder haemorrhage [None]
  - Renal artery thrombosis [None]

NARRATIVE: CASE EVENT DATE: 20170124
